FAERS Safety Report 5615195-1 (Version None)
Quarter: 2008Q1

REPORT INFORMATION
  Report Type: 
  Country: None (occurrence: None)
  Receive Date: 20080204
  Receipt Date: 20080204
  Transmission Date: 20080703
  Serious: Yes (Hospitalization, Other)
  Sender: FDA-Public Use
  Company Number: None

PATIENT
  Age: 47 Year
  Sex: Female
  Weight: 54.4316 kg

DRUGS (2)
  1. GEODON [Suspect]
     Dosage: 10 MG 1 SHOT INTRAMUSC
     Route: 030
     Dates: start: 20071212
  2. GEODON [Suspect]
     Dosage: 10 MG 1 SHOT INTRAMUSC
     Route: 030
     Dates: start: 20071213

REACTIONS (6)
  - BEDRIDDEN [None]
  - CONVULSIONS LOCAL [None]
  - ELECTROCARDIOGRAM ABNORMAL [None]
  - FEELING ABNORMAL [None]
  - HEAD INJURY [None]
  - SYNCOPE [None]
